FAERS Safety Report 4869277-2 (Version None)
Quarter: 2005Q4

REPORT INFORMATION
  Report Type: 
  Country: None (occurrence: None)
  Receive Date: 20051223
  Receipt Date: 20051216
  Transmission Date: 20060501
  Serious: Yes (Hospitalization)
  Sender: FDA-Public Use
  Company Number: HQWYE081619DEC05

PATIENT
  Age: 84 Year
  Sex: Female

DRUGS (1)
  1. ADVIL [Suspect]
     Indication: INFLAMMATION
     Dosage: 3 TIMES A DAY ORAL
     Dates: start: 20050401, end: 20051201

REACTIONS (1)
  - CARDIAC FAILURE CONGESTIVE [None]
